FAERS Safety Report 20577094 (Version 1)
Quarter: 2022Q1

REPORT INFORMATION
  Report Type: Spontaneous
  Country: CN (occurrence: CN)
  Receive Date: 20220310
  Receipt Date: 20220310
  Transmission Date: 20220423
  Serious: Yes (Other)
  Sender: FDA-Public Use
  Company Number: CN-009507513-2203CHN001744

PATIENT
  Age: 79 Year
  Sex: Female

DRUGS (2)
  1. CILASTATIN SODIUM\IMIPENEM [Suspect]
     Active Substance: CILASTATIN SODIUM\IMIPENEM
     Indication: Infection
     Dosage: 0.5 G, FOUR TIMES A DAY (QID)
     Route: 041
     Dates: start: 20220215, end: 20220218
  2. PIPERACILLIN SODIUM\TAZOBACTAM SODIUM [Suspect]
     Active Substance: PIPERACILLIN SODIUM\TAZOBACTAM SODIUM
     Indication: Infection
     Dosage: 4.5 G, FOUR TIMES A DAY (QID)
     Route: 041
     Dates: start: 20220212, end: 20220215

REACTIONS (1)
  - Superinfection fungal [Recovering/Resolving]

NARRATIVE: CASE EVENT DATE: 20220201
